FAERS Safety Report 15490283 (Version 2)
Quarter: 2020Q1

REPORT INFORMATION
  Report Type: Report from Study
  Country: None (occurrence: DE)
  Receive Date: 20181011
  Receipt Date: 20200327
  Transmission Date: 20200409
  Serious: Yes (Disabling, Congenital Anomaly, Other)
  Sender: FDA-Public Use
  Company Number: DE-BAUSCH-BL-2018-018886

PATIENT
  Sex: Female

DRUGS (10)
  1. RAMIPRIL. [Suspect]
     Active Substance: RAMIPRIL
     Indication: FOETAL EXPOSURE DURING PREGNANCY
     Route: 064
  2. COLECALCIFEROL [Suspect]
     Active Substance: CHOLECALCIFEROL
     Indication: OSTEOPOROSIS PROPHYLAXIS
     Route: 064
  3. ENALAPRIL MALEATE. [Suspect]
     Active Substance: ENALAPRIL MALEATE
     Indication: FOETAL EXPOSURE DURING PREGNANCY
     Dosage: TRANSPLACENTAL ROUTE IN UTERO
     Route: 064
  4. PROGRAF [Suspect]
     Active Substance: TACROLIMUS
     Indication: NEPHROTIC SYNDROME
     Dosage: (0-19 PLUS 6-GW)
     Route: 064
  5. FUROSEMIDE. [Suspect]
     Active Substance: FUROSEMIDE
     Indication: GLOMERULONEPHRITIS
     Dosage: 5 PLUS 4-19 PLUS 5 GW) 80 (MG / D) IF NECESSARY, 40 TO 80 MG
     Route: 064
  6. FLUVASTATIN SODIUM. [Suspect]
     Active Substance: FLUVASTATIN SODIUM
     Indication: HYPERCHOLESTEROLAEMIA
     Dosage: (0-8 GW)20 (MG/D)
     Route: 064
  7. FOLIC ACID. [Suspect]
     Active Substance: FOLIC ACID
     Indication: PROPHYLAXIS OF NEURAL TUBE DEFECT
     Route: 064
  8. PREDNISOLONE. [Suspect]
     Active Substance: PREDNISOLONE
     Indication: IMMUNE THROMBOCYTOPENIC PURPURA
     Dosage: 5-100MG (0-35 PLUS1 GW)5MG UNTIL WEEK 5 PLUS1, THEN PAUSE;100MG FOR 3 DAYS,; TRANSPLACENTAL
     Route: 064
  9. OMEPRAZOLE. [Suspect]
     Active Substance: OMEPRAZOLE
     Indication: GASTRITIS PROPHYLAXIS
     Route: 064
  10. TORASEMIDE [Suspect]
     Active Substance: TORSEMIDE
     Indication: GLOMERULONEPHRITIS
     Route: 064

REACTIONS (15)
  - Talipes [Unknown]
  - Congenital oral malformation [Unknown]
  - Developmental hip dysplasia [Unknown]
  - Limb reduction defect [Not Recovered/Not Resolved]
  - Premature baby [Unknown]
  - Limb hypoplasia congenital [Unknown]
  - Patent ductus arteriosus [Unknown]
  - Aplasia [Unknown]
  - Atrial septal defect [Unknown]
  - Facet joint syndrome [Unknown]
  - Foetal exposure during pregnancy [Unknown]
  - Dysmorphism [Unknown]
  - Cleft palate [Unknown]
  - Neck deformity [Unknown]
  - Retrognathia [Unknown]
